FAERS Safety Report 23305364 (Version 1)
Quarter: 2023Q4

REPORT INFORMATION
  Report Type: Spontaneous
  Country: JP (occurrence: JP)
  Receive Date: 20231218
  Receipt Date: 20231218
  Transmission Date: 20240109
  Serious: Yes (Hospitalization, Other)
  Sender: FDA-Public Use
  Company Number: JP-CHUGAI-2023037418

PATIENT
  Age: 53 Year
  Sex: Female
  Weight: 80 kg

DRUGS (7)
  1. TECENTRIQ [Suspect]
     Active Substance: ATEZOLIZUMAB
     Indication: Mixed hepatocellular cholangiocarcinoma
     Dosage: UNK
     Route: 065
     Dates: start: 20230825, end: 20230825
  2. AVASTIN [Suspect]
     Active Substance: BEVACIZUMAB
     Indication: Mixed hepatocellular cholangiocarcinoma
     Dosage: UNK
     Route: 065
     Dates: start: 20230825, end: 20230825
  3. AZILSARTAN KAMEDOXOMIL [Concomitant]
     Active Substance: AZILSARTAN KAMEDOXOMIL
     Dosage: 40 MILLIGRAM, QD
     Dates: start: 201812
  4. SPIRONOLACTONE [Concomitant]
     Active Substance: SPIRONOLACTONE
     Dosage: 25 MILLIGRAM, QD
     Dates: start: 201812
  5. CARVEDILOL [Concomitant]
     Active Substance: CARVEDILOL
     Dosage: 20 MILLIGRAM, QD
     Dates: start: 201812
  6. NIFEDIPINE [Concomitant]
     Active Substance: NIFEDIPINE
     Dosage: 20 MILLIGRAM, BID
     Dates: start: 201812
  7. VONOPRAZAN FUMARATE [Concomitant]
     Active Substance: VONOPRAZAN FUMARATE
     Dosage: UNK
     Dates: start: 20230716

REACTIONS (4)
  - Pyrexia [Not Recovered/Not Resolved]
  - Diarrhoea [Recovering/Resolving]
  - Enterocolitis [Recovered/Resolved]
  - Portal vein thrombosis [Unknown]

NARRATIVE: CASE EVENT DATE: 20230913
